FAERS Safety Report 6655394-3 (Version None)
Quarter: 2010Q1

REPORT INFORMATION
  Report Type: 
  Country: None (occurrence: None)
  Receive Date: 20100318
  Receipt Date: 20100114
  Transmission Date: 20100710
  Serious: Yes (Other)
  Sender: FDA-Public Use
  Company Number: 2010006106

PATIENT

DRUGS (1)
  1. XALATAN [Suspect]

REACTIONS (1)
  - MACULAR OEDEMA [None]
